FAERS Safety Report 5254634-5 (Version None)
Quarter: 2007Q1

REPORT INFORMATION
  Report Type: 
  Country: None (occurrence: None)
  Receive Date: 20070302
  Receipt Date: 20070220
  Transmission Date: 20070707
  Serious: Yes (Hospitalization)
  Sender: FDA-Public Use
  Company Number: US-ABBOTT-07P-163-0359785-00

PATIENT
  Age: 75 Year
  Sex: Female

DRUGS (6)
  1. DIVALPROEX SODIUM [Suspect]
     Indication: AFFECTIVE DISORDER
     Route: 065
  2. LITHIUM CARBONATE [Interacting]
     Indication: AFFECTIVE DISORDER
     Route: 065
  3. TRAZODONE HCL [Suspect]
     Indication: DRUG USE FOR UNKNOWN INDICATION
     Route: 065
  4. THIOTHIXENE [Suspect]
     Indication: DRUG USE FOR UNKNOWN INDICATION
     Route: 065
  5. AMITRIPTYLINE HCL [Suspect]
     Indication: DRUG USE FOR UNKNOWN INDICATION
     Route: 065
  6. BENZATROPINE [Interacting]
     Indication: DRUG USE FOR UNKNOWN INDICATION
     Route: 065

REACTIONS (5)
  - ANTICHOLINERGIC SYNDROME [None]
  - DRUG INTERACTION [None]
  - DRUG LEVEL DECREASED [None]
  - TARDIVE DYSKINESIA [None]
  - TREATMENT NONCOMPLIANCE [None]
